FAERS Safety Report 12709782 (Version 1)
Quarter: 2016Q3

REPORT INFORMATION
  Report Type: Spontaneous
  Country: US (occurrence: US)
  Receive Date: 20160901
  Receipt Date: 20160901
  Transmission Date: 20161109
  Serious: Yes (Other)
  Sender: FDA-Public Use
  Company Number: US-009507513-1608USA013732

PATIENT
  Age: 60 Year
  Sex: Female

DRUGS (14)
  1. PRAZOSIN [Concomitant]
     Active Substance: PRAZOSIN
     Dosage: 2MG, TWICE DAILY
  2. ESCITALOPRAM [Concomitant]
     Active Substance: ESCITALOPRAM OXALATE
     Dosage: 20 MG, TWICE DAILY
  3. GLYBURIDE. [Concomitant]
     Active Substance: GLYBURIDE
     Dosage: 2.5MG, TWICE DAILY
  4. METOPROLOL TARTRATE. [Concomitant]
     Active Substance: METOPROLOL TARTRATE
     Dosage: 50MG, TWICE DAILY
  5. LASIX [Concomitant]
     Active Substance: FUROSEMIDE
     Dosage: 40 MG, TWICE DAILY
  6. HYDROXYZINE PAMOATE. [Concomitant]
     Active Substance: HYDROXYZINE PAMOATE
     Dosage: 50MG, TWICE DAILY
  7. LEVOTHYROXINE SODIUM. [Concomitant]
     Active Substance: LEVOTHYROXINE SODIUM
     Dosage: 25 MICROGRAM, ONCE DAILY
  8. PRINIVIL [Suspect]
     Active Substance: LISINOPRIL
     Indication: HYPERTENSION
     Dosage: 10 MG, TWICE DAILY
     Route: 048
     Dates: start: 20160818, end: 20160820
  9. PRINIVIL [Suspect]
     Active Substance: LISINOPRIL
     Dosage: 10 MG
     Route: 048
     Dates: start: 20160825
  10. LYRICA [Concomitant]
     Active Substance: PREGABALIN
     Dosage: 225MG, TWICE DAILY
  11. LORAZEPAM. [Concomitant]
     Active Substance: LORAZEPAM
     Dosage: 2 MG TABLET, WHEN NEEDED FOR MOVEMENT
  12. POTASSIUM CHLORIDE. [Concomitant]
     Active Substance: POTASSIUM CHLORIDE
     Dosage: 10 MEQ, 3 TABLETS TWICE DAILY
  13. CYCLOBENZAPRINE HYDROCHLORIDE. [Concomitant]
     Active Substance: CYCLOBENZAPRINE HYDROCHLORIDE
     Dosage: 30 MG (3 TABLETS), TWO AT NIGHT AND ONE IN THE MORNING
  14. METFORMIN [Concomitant]
     Active Substance: METFORMIN HYDROCHLORIDE
     Dosage: 1000MG, TWICE DAILY

REACTIONS (14)
  - Diarrhoea [Unknown]
  - Abdominal pain upper [Unknown]
  - Dysstasia [Unknown]
  - Eructation [Unknown]
  - Product use issue [Unknown]
  - Movement disorder [Unknown]
  - Pain [Unknown]
  - Nausea [Recovered/Resolved]
  - Dizziness [Unknown]
  - Flatulence [Unknown]
  - Eye movement disorder [Unknown]
  - Dyspnoea [Unknown]
  - Hypertensive crisis [Unknown]
  - Gait disturbance [Unknown]

NARRATIVE: CASE EVENT DATE: 201608
